FAERS Safety Report 20194367 (Version 5)
Quarter: 2022Q1

REPORT INFORMATION
  Report Type: Report from Study
  Country: GB (occurrence: GB)
  Receive Date: 20211216
  Receipt Date: 20220328
  Transmission Date: 20220423
  Serious: Yes (Hospitalization, Disabling, Other)
  Sender: FDA-Public Use
  Company Number: GB-CELLTRION HEALTHCARE HUNGARY KFT-2020GB028028

PATIENT
  Age: 73 Year
  Sex: Male
  Weight: 99.8 kg

DRUGS (54)
  1. BENDAMUSTINE HYDROCHLORIDE [Suspect]
     Active Substance: BENDAMUSTINE HYDROCHLORIDE
     Indication: Mantle cell lymphoma
     Dosage: UNK, QD (LAST DOSE ADMINISTERED ON 09-MAR-2020)
     Route: 042
     Dates: start: 20200309, end: 20200309
  2. BENDAMUSTINE HYDROCHLORIDE [Suspect]
     Active Substance: BENDAMUSTINE HYDROCHLORIDE
     Dosage: UNK
     Route: 042
     Dates: start: 20200309, end: 20200309
  3. BENDAMUSTINE HYDROCHLORIDE [Suspect]
     Active Substance: BENDAMUSTINE HYDROCHLORIDE
     Dosage: UNK UNK, QD (1X/DAY (DOSAGE FORM: 201)
     Route: 041
     Dates: start: 20200309
  4. BENDAMUSTINE HYDROCHLORIDE [Suspect]
     Active Substance: BENDAMUSTINE HYDROCHLORIDE
     Dosage: UNK, DOSE FORM: 16
     Route: 042
     Dates: start: 20200309, end: 20200309
  5. BENDAMUSTINE HYDROCHLORIDE [Suspect]
     Active Substance: BENDAMUSTINE HYDROCHLORIDE
     Dosage: 1 DOSAGE FORM, 1 DF (DOSE FORM: 230)
     Route: 041
     Dates: start: 20200309
  6. BENDAMUSTINE HYDROCHLORIDE [Suspect]
     Active Substance: BENDAMUSTINE HYDROCHLORIDE
     Dosage: UNK UNK, QD (1X/DAY (DOSAGE FORM: 201)
     Route: 041
     Dates: start: 20200309, end: 20200309
  7. BENDAMUSTINE HYDROCHLORIDE [Suspect]
     Active Substance: BENDAMUSTINE HYDROCHLORIDE
     Dosage: UNK, QD (LAST DOSE ADMINISTERED ON 09-MAR-2020)
     Route: 042
     Dates: start: 20200309, end: 20200309
  8. BENDAMUSTINE HYDROCHLORIDE [Suspect]
     Active Substance: BENDAMUSTINE HYDROCHLORIDE
     Dosage: 120 (LAST DOSE ADMINISTERED ON 09-MAR-2020)
     Route: 042
     Dates: start: 20200309, end: 20200309
  9. BENDAMUSTINE HYDROCHLORIDE [Suspect]
     Active Substance: BENDAMUSTINE HYDROCHLORIDE
     Dosage: UNK (1X/DAY (DOSAGE FORM: 201))
     Route: 041
     Dates: start: 20200309
  10. BENDAMUSTINE HYDROCHLORIDE [Suspect]
     Active Substance: BENDAMUSTINE HYDROCHLORIDE
     Dosage: (LAST DOSE ADMINISTERED ON 09-MAR-2020)
     Route: 040
     Dates: start: 20200309, end: 20200309
  11. BENDAMUSTINE HYDROCHLORIDE [Suspect]
     Active Substance: BENDAMUSTINE HYDROCHLORIDE
     Dosage: 1 DF, QD (DOSE FORM OF 356)
     Route: 041
     Dates: start: 20200309, end: 20200309
  12. BENDAMUSTINE HYDROCHLORIDE [Suspect]
     Active Substance: BENDAMUSTINE HYDROCHLORIDE
     Dosage: UNK (DOSE FORM OF 356)
     Route: 041
     Dates: start: 20210309
  13. BENDAMUSTINE HYDROCHLORIDE [Suspect]
     Active Substance: BENDAMUSTINE HYDROCHLORIDE
     Dosage: 1 DOSAGE FORM, QD (DOSE FORM OF 365)
     Route: 041
     Dates: start: 20210309
  14. BENDAMUSTINE HYDROCHLORIDE [Suspect]
     Active Substance: BENDAMUSTINE HYDROCHLORIDE
     Dosage: 1 DOSAGE FORM, QD (DOSE FORM OF 201)
     Route: 041
     Dates: start: 20210309
  15. BENDAMUSTINE HYDROCHLORIDE [Suspect]
     Active Substance: BENDAMUSTINE HYDROCHLORIDE
     Dosage: 120 DOSAGE FORM
     Route: 041
     Dates: end: 20200309
  16. BENDAMUSTINE HYDROCHLORIDE [Suspect]
     Active Substance: BENDAMUSTINE HYDROCHLORIDE
     Dosage: UNK
     Route: 042
  17. BENDAMUSTINE HYDROCHLORIDE [Suspect]
     Active Substance: BENDAMUSTINE HYDROCHLORIDE
     Dosage: UNK
     Route: 041
     Dates: start: 20210309
  18. BENDAMUSTINE HYDROCHLORIDE [Suspect]
     Active Substance: BENDAMUSTINE HYDROCHLORIDE
     Dosage: UNK
     Route: 065
     Dates: start: 20200309
  19. CYTARABINE [Suspect]
     Active Substance: CYTARABINE
     Indication: Mantle cell lymphoma
     Dosage: 20 MILLIGRAM (PHARMACEUTICAL DOSE FORM: 16)
     Route: 065
     Dates: start: 20200115, end: 20200303
  20. CYTARABINE [Suspect]
     Active Substance: CYTARABINE
     Dosage: LAST ADMINISTERED ON 11MAR2020
     Route: 041
     Dates: start: 20200309, end: 20200311
  21. CYTARABINE [Suspect]
     Active Substance: CYTARABINE
     Dosage: 20 MILLIGRAM, QD (11 MAR20, HE RECEIVED MOST RECENT DOSE OF CYTARABINE PRIOR TO EVENT ONSET)
     Route: 041
     Dates: start: 20200309
  22. CYTARABINE [Suspect]
     Active Substance: CYTARABINE
     Dosage: 20 MG, QD, MOST RECENT DOSE ON 11/MAR/2020 (DOSE FORM: 230)
     Route: 041
     Dates: start: 20200115, end: 20200303
  23. CYTARABINE [Suspect]
     Active Substance: CYTARABINE
     Dosage: 20 MILLIGRAM, QD
     Route: 041
     Dates: start: 20200309
  24. CYTARABINE [Suspect]
     Active Substance: CYTARABINE
     Dosage: 20 MILLIGRAM, QD(LAST ADMINISTERED ON 11-MAR-2020)
     Route: 041
     Dates: start: 20200309, end: 20200311
  25. CYTARABINE [Suspect]
     Active Substance: CYTARABINE
     Dosage: 20 MILLIGRAM (LAST ADMINISTERED ON 11 MAR 2020)
     Route: 065
     Dates: start: 20210309, end: 20210311
  26. CYTARABINE [Suspect]
     Active Substance: CYTARABINE
     Dosage: 20 MILLIGRAM, QD
     Route: 065
     Dates: start: 20200309
  27. CYTARABINE [Suspect]
     Active Substance: CYTARABINE
     Dosage: 20 MILLIGRAM (CUMULATIVE DOSE 20)
     Route: 041
     Dates: start: 20200115, end: 20200303
  28. CYTARABINE [Suspect]
     Active Substance: CYTARABINE
     Dosage: 20 MILLIGRAM (LAST ADMINISTERED ON 11 MAR 2020)
     Route: 041
     Dates: start: 20200309, end: 20200311
  29. CYTARABINE [Suspect]
     Active Substance: CYTARABINE
     Dosage: 80 MILLIGRAM, QD (20 MG, QD (ON 11 MAR2 020) (LAST ADMINISTERED ON 11-MAR-2020,MOST REC)
     Route: 040
     Dates: start: 20200309, end: 20200311
  30. CYTARABINE [Suspect]
     Active Substance: CYTARABINE
     Dosage: 20 MG, QD (DOSE FORM: 230)
     Route: 041
     Dates: start: 20200303
  31. CYTARABINE [Suspect]
     Active Substance: CYTARABINE
     Dosage: 60 MILLIGRAM
     Route: 041
     Dates: start: 20200311
  32. CYTARABINE [Suspect]
     Active Substance: CYTARABINE
     Dosage: 20 MG, QD,(DOSE FORM: 230)
     Route: 041
     Dates: start: 20210309, end: 20210311
  33. CYTARABINE [Suspect]
     Active Substance: CYTARABINE
     Dosage: 16 DOSAGE FORM, QD
     Route: 041
     Dates: start: 20200309, end: 20200311
  34. CYTARABINE [Suspect]
     Active Substance: CYTARABINE
     Dosage: 16 DOSAGE FORM
     Route: 041
     Dates: start: 20200115, end: 20200303
  35. PARSACLISIB [Suspect]
     Active Substance: PARSACLISIB
     Indication: Mantle cell lymphoma
     Dosage: 20 MG, QD (DOSE PRIOR TO THE SERIOUS ADVERSE EVENTS (SAES)
     Route: 048
     Dates: start: 20200115, end: 20200303
  36. PARSACLISIB [Suspect]
     Active Substance: PARSACLISIB
     Dosage: 20 MG, QD (DOSE PRIOR TO THE SERIOUS ADVERSE EVENTS (SAES)
     Route: 048
     Dates: start: 20200115, end: 20200303
  37. PARSACLISIB [Suspect]
     Active Substance: PARSACLISIB
     Dosage: 20 MG, QD (DOSE PRIOR TO THE SERIOUS ADVERSE EVENTS (SAES)
     Route: 048
     Dates: start: 20200115, end: 20200303
  38. PARSACLISIB [Suspect]
     Active Substance: PARSACLISIB
     Dosage: UNK, (DOSE FORM: 245)
     Route: 048
     Dates: start: 20200115, end: 20200303
  39. RITUXIMAB [Suspect]
     Active Substance: RITUXIMAB
     Indication: Mantle cell lymphoma
     Dosage: UNK UNK, QD (UNK, 1X/DAY)
     Route: 041
     Dates: start: 20200309, end: 20200309
  40. RITUXIMAB [Suspect]
     Active Substance: RITUXIMAB
     Dosage: 1 DF, QD (1X/DAY (DOSAGE FORM: 16)
     Route: 041
     Dates: start: 20200309, end: 20200309
  41. RITUXIMAB [Suspect]
     Active Substance: RITUXIMAB
     Dosage: 1 DOSAGE FORM, QD (ONCE DAILY, 1 DF, QD (1X/DAY)
     Route: 041
     Dates: start: 20200309, end: 20200309
  42. RITUXIMAB [Suspect]
     Active Substance: RITUXIMAB
     Dosage: 1 DOSAGE FORM, QD (ONCE DAILY, 1 DF, QD (1X/DAY)
     Route: 041
     Dates: start: 20200303, end: 20200309
  43. RITUXIMAB [Suspect]
     Active Substance: RITUXIMAB
     Dosage: 1 DOSAGE FORM
     Dates: start: 20200309, end: 20200309
  44. RITUXIMAB [Suspect]
     Active Substance: RITUXIMAB
     Dosage: 1 DOSAGE FORM
     Route: 065
     Dates: start: 20200303, end: 20200309
  45. RITUXIMAB [Suspect]
     Active Substance: RITUXIMAB
     Dosage: 1 DOSAGE FORM, DOSAGE FORM: 318
     Dates: start: 20200303, end: 20200309
  46. RITUXIMAB [Suspect]
     Active Substance: RITUXIMAB
     Dosage: 1 DF (DOSAGE FORM: 230)
     Route: 041
     Dates: start: 20200303, end: 20200309
  47. RITUXIMAB [Suspect]
     Active Substance: RITUXIMAB
     Dosage: 1 DOSAGE FORM, QD (1 DF)
     Route: 041
     Dates: end: 20200309
  48. RITUXIMAB [Suspect]
     Active Substance: RITUXIMAB
     Dosage: 1 DOSAGE FORM, QD
     Route: 041
     Dates: start: 20200309
  49. MEROPENEM [Concomitant]
     Active Substance: MEROPENEM
     Indication: Decreased appetite
     Dosage: UNK
     Route: 065
     Dates: start: 20200319
  50. MEROPENEM [Concomitant]
     Active Substance: MEROPENEM
     Indication: Cough
     Dosage: UNK
     Dates: start: 20200309
  51. MEROPENEM [Concomitant]
     Active Substance: MEROPENEM
     Indication: Malaise
  52. ACETAMINOPHEN [Concomitant]
     Active Substance: ACETAMINOPHEN
     Indication: Decreased appetite
     Dosage: UNK
     Dates: start: 20200309
  53. ACETAMINOPHEN [Concomitant]
     Active Substance: ACETAMINOPHEN
     Indication: Malaise
     Dosage: UNK
     Dates: start: 20200319
  54. ACETAMINOPHEN [Concomitant]
     Active Substance: ACETAMINOPHEN
     Indication: Cough

REACTIONS (7)
  - Bronchitis [Recovered/Resolved]
  - Neutropenic sepsis [Recovered/Resolved]
  - Pneumonia [Recovered/Resolved]
  - Neutrophil count decreased [Recovered/Resolved]
  - Off label use [Unknown]
  - Intentional product use issue [Unknown]
  - Product use in unapproved indication [Unknown]

NARRATIVE: CASE EVENT DATE: 20200309
